FAERS Safety Report 13900018 (Version 1)
Quarter: 2017Q3

REPORT INFORMATION
  Report Type: Report from Study
  Country: US (occurrence: US)
  Receive Date: 20170824
  Receipt Date: 20170824
  Transmission Date: 20171127
  Serious: Yes (Other)
  Sender: FDA-Public Use
  Company Number: US-GILEAD-2017-0289402

PATIENT
  Age: 78 Year
  Sex: Male

DRUGS (1)
  1. RANOLAZINE. [Suspect]
     Active Substance: RANOLAZINE
     Indication: PRODUCT USED FOR UNKNOWN INDICATION
     Dosage: 1000 MG, UNK
     Route: 048
     Dates: start: 20100101

REACTIONS (4)
  - Haematological malignancy [Not Recovered/Not Resolved]
  - Vascular graft [Unknown]
  - Vertigo [Not Recovered/Not Resolved]
  - Arterial occlusive disease [Not Recovered/Not Resolved]
